FAERS Safety Report 8910703 (Version 1)
Quarter: 2012Q4

REPORT INFORMATION
  Report Type: Spontaneous
  Country: DE (occurrence: None)
  Receive Date: 20121107
  Receipt Date: 20121107
  Transmission Date: 20130627
  Serious: Yes (Congenital Anomaly, Other)
  Sender: FDA-Public Use
  Company Number: GER/GER/12/0026452

PATIENT
  Sex: Male
  Weight: 3.57 kg

DRUGS (3)
  1. CITALOPRAM (CITALOPRAM) [Suspect]
     Indication: DRUG USE FOR UNKNOWN INDICATION
     Dosage: 60 mg, Transplacental
     Route: 064
     Dates: start: 20110318, end: 20111219
  2. VIGIL [Suspect]
     Indication: DRUG USE FOR UNKNOWN INDICATION
     Dosage: 400 mg , Transplacental
     Route: 064
     Dates: start: 20110318, end: 20111219
  3. BETAMETHASONE [Concomitant]

REACTIONS (6)
  - Maternal drugs affecting foetus [None]
  - Patent ductus arteriosus [None]
  - Atrial septal defect [None]
  - Drug withdrawal syndrome neonatal [None]
  - Neonatal respiratory distress syndrome [None]
  - Infantile apnoeic attack [None]
